FAERS Safety Report 5720611-0 (Version None)
Quarter: 2008Q2

REPORT INFORMATION
  Report Type: 
  Country: None (occurrence: None)
  Receive Date: 20080429
  Receipt Date: 20080411
  Transmission Date: 20081010
  Serious: No
  Sender: FDA-Public Use
  Company Number: US-BAYER-200819807NA

PATIENT
  Age: 2 Year

DRUGS (1)
  1. YAZ [Suspect]
     Route: 048

REACTIONS (1)
  - NO ADVERSE EVENT [None]
